APPROVED DRUG PRODUCT: ERYTHROMYCIN
Active Ingredient: ERYTHROMYCIN
Strength: 250MG
Dosage Form/Route: CAPSULE, DELAYED REL PELLETS;ORAL
Application: A063098 | Product #001
Applicant: BARR LABORATORIES INC
Approved: May 4, 1989 | RLD: No | RS: No | Type: DISCN